FAERS Safety Report 10400247 (Version 1)
Quarter: 2014Q3

REPORT INFORMATION
  Report Type: Spontaneous
  Country: US (occurrence: US)
  Receive Date: 20140821
  Receipt Date: 20140821
  Transmission Date: 20150326
  Serious: No
  Sender: FDA-Public Use
  Company Number: US-ASTRAZENECA-2014SE57265

PATIENT
  Sex: Female

DRUGS (7)
  1. CYCLOBENZAPRINE [Suspect]
     Active Substance: CYCLOBENZAPRINE
     Route: 065
  2. MIDRIN [Suspect]
     Active Substance: ACETAMINOPHEN\DICHLORALPHENAZONE\ISOMETHEPTENE
     Route: 065
  3. NEXIUM [Suspect]
     Active Substance: ESOMEPRAZOLE MAGNESIUM
     Route: 048
  4. NUBAIN [Suspect]
     Active Substance: NALBUPHINE HYDROCHLORIDE
     Route: 065
  5. NEURONTIN [Suspect]
     Active Substance: GABAPENTIN
     Route: 065
  6. SYNTHROID [Suspect]
     Active Substance: LEVOTHYROXINE SODIUM
     Route: 065
  7. CYMBALTA [Suspect]
     Active Substance: DULOXETINE HYDROCHLORIDE
     Route: 065

REACTIONS (1)
  - Drug hypersensitivity [Unknown]
